FAERS Safety Report 14725602 (Version 1)
Quarter: 2018Q2

REPORT INFORMATION
  Report Type: Spontaneous
  Country: US (occurrence: US)
  Receive Date: 20180406
  Receipt Date: 20180406
  Transmission Date: 20180711
  Serious: No
  Sender: FDA-Public Use
  Company Number: US-009507513-1803USA012908

PATIENT
  Age: 62 Year
  Sex: Female

DRUGS (2)
  1. AMIKACIN. [Concomitant]
     Active Substance: AMIKACIN
     Indication: NOCARDIOSIS
  2. PRIMAXIN IV [Suspect]
     Active Substance: CILASTATIN SODIUM\IMIPENEM
     Indication: NOCARDIOSIS
     Dosage: 12 DAYS

REACTIONS (1)
  - Drug eruption [Unknown]
